FAERS Safety Report 17509591 (Version 2)
Quarter: 2025Q2

REPORT INFORMATION
  Report Type: Spontaneous
  Country: IT (occurrence: IT)
  Receive Date: 20200306
  Receipt Date: 20250417
  Transmission Date: 20250716
  Serious: Yes (Hospitalization)
  Sender: MYLAN
  Company Number: IT-MYLANLABS-2020M1024458

PATIENT
  Age: 71 Year
  Sex: Male

DRUGS (3)
  1. PREDNISONE [Suspect]
     Active Substance: PREDNISONE
     Indication: Chronic lymphocytic leukaemia
     Dosage: 25 MILLIGRAM, QD
  2. ACYCLOVIR [Concomitant]
     Active Substance: ACYCLOVIR
     Indication: Antibiotic therapy
     Dosage: 400 MILLIGRAM, BID
  3. COTRIMOXAZOLE [Concomitant]
     Active Substance: SULFAMETHOXAZOLE\TRIMETHOPRIM
     Indication: Antibiotic prophylaxis
     Dosage: 160 MILLIGRAM, BID

REACTIONS (6)
  - Nocardiosis [Recovered/Resolved]
  - Brain abscess [Recovered/Resolved]
  - Pulmonary nocardiosis [Recovering/Resolving]
  - Cutaneous nocardiosis [Recovered/Resolved]
  - Soft tissue infection [Recovered/Resolved]
  - Haematoma muscle [Recovering/Resolving]
